FAERS Safety Report 6145621-3 (Version None)
Quarter: 2009Q2

REPORT INFORMATION
  Report Type: 
  Country: None (occurrence: None)
  Receive Date: 20090407
  Receipt Date: 20090331
  Transmission Date: 20091009
  Serious: Yes (Death, Hospitalization, Other)
  Sender: FDA-Public Use
  Company Number: US-CELGENEUS-163-21880-08101758

PATIENT
  Sex: Male

DRUGS (10)
  1. REVLIMID [Suspect]
     Indication: MULTIPLE MYELOMA
     Route: 048
     Dates: start: 20061025
  2. REVLIMID [Suspect]
     Route: 048
     Dates: start: 20080901
  3. REVLIMID [Suspect]
     Route: 048
     Dates: start: 20080806, end: 20080901
  4. COUMADIN [Concomitant]
     Indication: DRUG USE FOR UNKNOWN INDICATION
     Route: 065
     Dates: end: 20080101
  5. CIPROFLOXACIN HCL [Concomitant]
     Indication: BRONCHITIS
     Route: 065
  6. DECADRON [Concomitant]
     Indication: DRUG USE FOR UNKNOWN INDICATION
     Route: 065
  7. LASIX [Concomitant]
     Indication: DRUG USE FOR UNKNOWN INDICATION
     Route: 051
  8. LANTUS [Concomitant]
     Indication: DRUG USE FOR UNKNOWN INDICATION
     Route: 065
  9. NITROGLYCERIN [Concomitant]
     Indication: DRUG USE FOR UNKNOWN INDICATION
     Route: 065
  10. WHOLE BLOOD [Concomitant]
     Dosage: 1 UNIT
     Route: 065

REACTIONS (6)
  - ATRIAL FIBRILLATION [None]
  - DEATH [None]
  - HAEMOGLOBIN DECREASED [None]
  - PNEUMONIA [None]
  - PNEUMONIA STAPHYLOCOCCAL [None]
  - PROTHROMBIN LEVEL INCREASED [None]
